FAERS Safety Report 5447812-3 (Version None)
Quarter: 2007Q3

REPORT INFORMATION
  Report Type: 
  Country: None (occurrence: None)
  Receive Date: 20070910
  Receipt Date: 20070829
  Transmission Date: 20080115
  Serious: Yes (Life-Threatening, Hospitalization, Other)
  Sender: FDA-Public Use
  Company Number: US-PFIZER INC-2007073514

PATIENT
  Sex: Male

DRUGS (1)
  1. DILANTIN [Suspect]

REACTIONS (21)
  - ASPIRATION [None]
  - ATTENTION DEFICIT/HYPERACTIVITY DISORDER [None]
  - BLINDNESS [None]
  - BRAIN DAMAGE [None]
  - CORNEAL OPACITY [None]
  - DEPRESSION [None]
  - DYSPHAGIA [None]
  - EMOTIONAL DISORDER [None]
  - FEEDING DISORDER [None]
  - GASTROINTESTINAL DISORDER [None]
  - LUNG INJURY [None]
  - MULTI-ORGAN FAILURE [None]
  - NERVOUS SYSTEM DISORDER [None]
  - NEURALGIA [None]
  - PENIS DISORDER [None]
  - PYREXIA [None]
  - RASH [None]
  - SEPSIS [None]
  - STEVENS-JOHNSON SYNDROME [None]
  - THERMAL BURN [None]
  - TOXIC EPIDERMAL NECROLYSIS [None]
